FAERS Safety Report 8348112-4 (Version None)
Quarter: 2012Q2

REPORT INFORMATION
  Report Type: 
  Country: None (occurrence: None)
  Receive Date: 20120509
  Receipt Date: 20120503
  Transmission Date: 20120825
  Serious: Yes (Hospitalization)
  Sender: FDA-Public Use
  Company Number: ES-TEVA-336672USA

PATIENT
  Sex: Male
  Weight: 85 kg

DRUGS (4)
  1. CYTARABINE [Suspect]
     Indication: LYMPHOMA
  2. TREANDA [Suspect]
     Indication: B-CELL LYMPHOMA
     Route: 042
     Dates: start: 20120316, end: 20120317
  3. ETOPOSIDE [Suspect]
     Indication: LYMPHOMA
  4. MELPHALAN HYDROCHLORIDE [Suspect]

REACTIONS (1)
  - ACUTE RESPIRATORY FAILURE [None]
